FAERS Safety Report 19267684 (Version 1)
Quarter: 2021Q2

REPORT INFORMATION
  Report Type: Spontaneous
  Country: US (occurrence: US)
  Receive Date: 20210518
  Receipt Date: 20210518
  Transmission Date: 20210717
  Serious: No
  Sender: FDA-Public Use
  Company Number: US-CELLTRION INC.-2021US002847

PATIENT

DRUGS (14)
  1. TRUXIMA [Suspect]
     Active Substance: RITUXIMAB-ABBS
     Dosage: UNK; EVERY 8 WEEKS (LAST TRUXIMA TREATMENT)
     Route: 042
     Dates: start: 20210310, end: 20210310
  2. BENADRYL [Concomitant]
     Active Substance: DIPHENHYDRAMINE HYDROCHLORIDE
     Dosage: GIVEN BEFORE EACH INFUSION
     Route: 042
     Dates: start: 202101
  3. TYLENOL [Concomitant]
     Active Substance: ACETAMINOPHEN
     Dosage: 2 DOSAGE FORMS (TABLETS) GIVEN BEFORE EACH INFUSION
     Route: 048
     Dates: start: 20210310
  4. TRUXIMA [Suspect]
     Active Substance: RITUXIMAB-ABBS
     Indication: FOLLICLE CENTRE LYMPHOMA, FOLLICULAR GRADE I, II, III STAGE III
     Dosage: UNK; AROUND EVERY 8 WEEKS (FIRST INFUSION)
     Route: 042
     Dates: start: 202009
  5. TRUXIMA [Suspect]
     Active Substance: RITUXIMAB-ABBS
     Dosage: UNK; AROUND EVERY 8 WEEKS (SUBSEQUENT INFUSION)
     Route: 042
     Dates: start: 202101
  6. BENADRYL [Concomitant]
     Active Substance: DIPHENHYDRAMINE HYDROCHLORIDE
     Indication: PREMEDICATION
     Dosage: GIVEN BEFORE EACH INFUSION
     Route: 042
     Dates: start: 202009
  7. BENADRYL [Concomitant]
     Active Substance: DIPHENHYDRAMINE HYDROCHLORIDE
     Dosage: GIVEN BEFORE EACH INFUSION
     Route: 042
     Dates: start: 202011
  8. TYLENOL [Concomitant]
     Active Substance: ACETAMINOPHEN
     Indication: PREMEDICATION
     Dosage: 2 DOSAGE FORMS (TABLETS) GIVEN BEFORE EACH INFUSION
     Route: 048
     Dates: start: 202009
  9. CHOP [Suspect]
     Active Substance: CYCLOPHOSPHAMIDE\DOXORUBICIN\PREDNISONE\VINCRISTINE
     Indication: FOLLICLE CENTRE LYMPHOMA, FOLLICULAR GRADE I, II, III STAGE III
     Dosage: CONTINUOUS TREATMENT NOW FOR 11 YEARS EVERY ROUGHLY 7 MAYBE 8 WEEKS AT THE MOST.
     Route: 042
  10. BENADRYL [Concomitant]
     Active Substance: DIPHENHYDRAMINE HYDROCHLORIDE
     Dosage: GIVEN BEFORE EACH INFUSION
     Route: 042
     Dates: start: 20210310
  11. TYLENOL [Concomitant]
     Active Substance: ACETAMINOPHEN
     Dosage: 2 DOSAGE FORMS (TABLETS) GIVEN BEFORE EACH INFUSION
     Route: 048
     Dates: start: 202011
  12. TRUXIMA [Suspect]
     Active Substance: RITUXIMAB-ABBS
     Indication: DIFFUSE LARGE B-CELL LYMPHOMA
     Dosage: UNK; AROUND EVERY 8 WEEKS (SUBSEQUENT INFUSION)
     Route: 042
     Dates: start: 202011
  13. CHOP [Suspect]
     Active Substance: CYCLOPHOSPHAMIDE\DOXORUBICIN\PREDNISONE\VINCRISTINE
     Indication: DIFFUSE LARGE B-CELL LYMPHOMA
  14. TYLENOL [Concomitant]
     Active Substance: ACETAMINOPHEN
     Dosage: 2 DOSAGE FORMS (TABLETS) GIVEN BEFORE EACH INFUSION
     Route: 048
     Dates: start: 202101

REACTIONS (2)
  - Pyrexia [Recovered/Resolved]
  - Myalgia [Recovered/Resolved]
